FAERS Safety Report 10264371 (Version 1)
Quarter: 2014Q2

REPORT INFORMATION
  Report Type: Spontaneous
  Country: US (occurrence: US)
  Receive Date: 20140627
  Receipt Date: 20140627
  Transmission Date: 20141212
  Serious: Yes (Other)
  Sender: FDA-Public Use
  Company Number: US-JNJFOC-20140615545

PATIENT
  Sex: Female
  Weight: 88.91 kg

DRUGS (14)
  1. XARELTO [Suspect]
     Indication: CEREBROVASCULAR ACCIDENT PROPHYLAXIS
     Route: 048
     Dates: start: 2011
  2. XARELTO [Suspect]
     Indication: ATRIAL FIBRILLATION
     Route: 048
     Dates: start: 2011
  3. ASPIRIN [Concomitant]
     Indication: CARDIAC DISORDER
     Route: 048
     Dates: start: 2011
  4. BACLOFEN [Concomitant]
     Indication: HYPERTENSION
     Route: 048
  5. CARBAMAZEPINE [Concomitant]
     Indication: TRIGEMINAL NEURALGIA
     Dosage: 1/2 OR 1 1/2 TABLET
     Route: 048
  6. CLONIDINE [Concomitant]
     Indication: BLOOD PRESSURE ABNORMAL
     Route: 062
     Dates: start: 2011
  7. CLONIDINE [Concomitant]
     Indication: BLOOD PRESSURE ABNORMAL
     Route: 048
     Dates: start: 2011
  8. DIOVAN [Concomitant]
     Indication: BLOOD PRESSURE ABNORMAL
     Route: 048
     Dates: start: 2011
  9. DULOXETINE [Concomitant]
     Route: 048
     Dates: start: 2011
  10. HOMEOPATIC PREPARATION [Concomitant]
     Indication: SPINAL COLUMN STENOSIS
     Route: 061
  11. FLECAINIDE ACETATE [Concomitant]
     Route: 048
  12. HYDROCODONE/ACETAMINOPHEN [Concomitant]
     Indication: PAIN
     Dosage: 7.5-325 MG
     Route: 048
     Dates: start: 2013
  13. NADOLOL [Concomitant]
     Dosage: 15 MG/ 30 MG ONCE DAILY
     Route: 048
  14. OMEPRAZOLE [Concomitant]
     Indication: ARTHRITIS
     Route: 048

REACTIONS (5)
  - Thrombosis [Unknown]
  - Device related infection [Unknown]
  - Abnormal loss of weight [Unknown]
  - Hypervigilance [Unknown]
  - Incorrect dose administered [Unknown]
